FAERS Safety Report 25649434 (Version 1)
Quarter: 2025Q3

REPORT INFORMATION
  Report Type: Other
  Country: IL (occurrence: IL)
  Receive Date: 20250806
  Receipt Date: 20250806
  Transmission Date: 20251020
  Serious: Yes (Hospitalization)
  Sender: CELLTRION
  Company Number: IL-CELLTRION INC.-2025IL026116

PATIENT

DRUGS (4)
  1. TRUXIMA [Suspect]
     Active Substance: RITUXIMAB-ABBS
     Indication: Product used for unknown indication
     Dates: start: 20250403
  2. LEVOTHYROXINE [Concomitant]
     Active Substance: LEVOTHYROXINE
  3. NOCTURNO [Concomitant]
  4. VASODIP COMBO [Concomitant]

REACTIONS (3)
  - Syncope [Unknown]
  - Rash [Unknown]
  - Rash pruritic [Unknown]
